FAERS Safety Report 19401783 (Version 1)
Quarter: 2021Q2

REPORT INFORMATION
  Report Type: Spontaneous
  Country: FR (occurrence: FR)
  Receive Date: 20210611
  Receipt Date: 20210611
  Transmission Date: 20210717
  Serious: Yes (Hospitalization, Other)
  Sender: FDA-Public Use
  Company Number: FR-AUROBINDO-AUR-APL-2021-024628

PATIENT
  Age: 78 Year
  Sex: Male
  Weight: 78 kg

DRUGS (16)
  1. BISOCE [Concomitant]
     Active Substance: BISOPROLOL
     Indication: HYPERTENSION
     Dosage: UNK
     Route: 065
     Dates: end: 20200203
  2. DOLIPRANE [Concomitant]
     Active Substance: ACETAMINOPHEN
     Indication: PAIN
     Dosage: UNK
     Route: 065
     Dates: start: 2018
  3. COLCHIMAX [Concomitant]
     Indication: GOUT
     Dosage: UNK
     Route: 065
     Dates: start: 2018, end: 20200203
  4. FOLIC ACID. [Concomitant]
     Active Substance: FOLIC ACID
     Indication: ANAEMIA FOLATE DEFICIENCY
     Dosage: UNK
     Route: 065
     Dates: start: 2018
  5. LERCANIDIPINE MYLAN [Concomitant]
     Active Substance: LERCANIDIPINE
     Indication: HYPERTENSION
     Dosage: UNK
     Route: 065
     Dates: start: 2018, end: 20191223
  6. IRBESARTAN BIOGARAN [Concomitant]
     Active Substance: IRBESARTAN
     Indication: HYPERTENSION
     Dosage: UNK
     Route: 065
     Dates: start: 2018, end: 20200203
  7. BETAHISTINE [Suspect]
     Active Substance: BETAHISTINE
     Indication: DIZZINESS
     Dosage: 24 MILLIGRAM, ONCE A DAY
     Route: 048
     Dates: start: 20200120, end: 20200203
  8. FEBUXOSTAT. [Concomitant]
     Active Substance: FEBUXOSTAT
     Indication: GOUT
     Dosage: UNK
     Route: 065
     Dates: start: 2018, end: 20200203
  9. TOPALGIC [TRAMADOL HYDROCHLORIDE] [Suspect]
     Active Substance: TRAMADOL HYDROCHLORIDE
     Indication: PAIN
     Dosage: 10 GTT DROPS, ONCE A DAY
     Route: 048
     Dates: start: 201912, end: 20200203
  10. ATORVASTATINE MYLAN [Concomitant]
     Active Substance: ATORVASTATIN
     Indication: DYSLIPIDAEMIA
     Dosage: UNK
     Route: 065
     Dates: start: 2018, end: 20200203
  11. AMLODIPINE [Suspect]
     Active Substance: AMLODIPINE BESYLATE
     Indication: HYPERTENSION
     Dosage: 10 MILLIGRAM, ONCE A DAY
     Route: 048
     Dates: start: 20191223, end: 20200203
  12. ALLOPURINOL TABLETS [Suspect]
     Active Substance: ALLOPURINOL
     Indication: GOUT
     Dosage: 200 MILLIGRAM, ONCE A DAY
     Route: 048
     Dates: start: 20200201, end: 20200203
  13. CHOLECALCIFEROL MYLAN [Concomitant]
     Indication: VITAMIN D DEFICIENCY
     Dosage: UNK
     Route: 065
  14. PREGABALIN CAPSULES [Suspect]
     Active Substance: PREGABALIN
     Indication: NEURALGIA
     Dosage: 100 MILLIGRAM, ONCE A DAY
     Route: 048
     Dates: start: 201912, end: 20200203
  15. CLOPIDOGREL [Concomitant]
     Active Substance: CLOPIDOGREL BISULFATE
     Indication: HYPERTENSION
     Dosage: UNK
     Route: 065
  16. ESOMEPRAZOLE MYLAN [Concomitant]
     Active Substance: ESOMEPRAZOLE
     Indication: BARRETT^S OESOPHAGUS
     Dosage: UNK
     Route: 065
     Dates: start: 2018, end: 20200203

REACTIONS (1)
  - Toxic epidermal necrolysis [Recovered/Resolved]

NARRATIVE: CASE EVENT DATE: 20200202
